FAERS Safety Report 19871635 (Version 1)
Quarter: 2021Q3

REPORT INFORMATION
  Report Type: Spontaneous
  Country: NL (occurrence: NL)
  Receive Date: 20210922
  Receipt Date: 20210922
  Transmission Date: 20211014
  Serious: Yes (Hospitalization, Disabling)
  Sender: FDA-Public Use
  Company Number: NL-MYLANLABS-2021M1064294

PATIENT
  Age: 74 Year
  Sex: Female
  Weight: 66 kg

DRUGS (3)
  1. SODIUM THIOSULFATE [Concomitant]
     Active Substance: SODIUM THIOSULFATE
     Dosage: 200 MILLILITER (200 ML HYPERTONE THIOSULFAATOPLOSSING)
  2. CISPLATIN. [Suspect]
     Active Substance: CISPLATIN
     Indication: CYTOREDUCTIVE SURGERY
  3. CISPLATIN. [Suspect]
     Active Substance: CISPLATIN
     Indication: HYPERTHERMIC CHEMOTHERAPY
     Dosage: 100 MILLIGRAM/SQ. METER (MET MAXIMAAL 200 MG)
     Dates: start: 20201127

REACTIONS (2)
  - Poor peripheral circulation [Not Recovered/Not Resolved]
  - Skin discolouration [Not Recovered/Not Resolved]

NARRATIVE: CASE EVENT DATE: 20201127
